FAERS Safety Report 11294577 (Version 1)
Quarter: 2015Q3

REPORT INFORMATION
  Report Type: Spontaneous
  Country: BR (occurrence: None)
  Receive Date: 20150721
  Receipt Date: 20150721
  Transmission Date: 20151125
  Serious: Yes (Other)
  Sender: FDA-Public Use
  Company Number: BR-TORRENT-00003010

PATIENT
  Age: 63 Year
  Sex: Female

DRUGS (6)
  1. ALPRAZOLAM. [Concomitant]
     Active Substance: ALPRAZOLAM
  2. LOSARTAN. [Concomitant]
     Active Substance: LOSARTAN
  3. PURAN [Concomitant]
     Active Substance: LEVOTHYROXINE SODIUM
  4. PANTOPRAZOLE [Concomitant]
     Active Substance: PANTOPRAZOLE SODIUM
  5. VENLIFT OD (INN:VENLAFAXINE HYDROCHLORIDE) [Suspect]
     Active Substance: VENLAFAXINE HYDROCHLORIDE
     Indication: DEPRESSION
     Dosage: ONCE DAILY/ORAL   ORAL
     Route: 048
     Dates: start: 201505
  6. HYDROCHLOROTHIAZIDE. [Concomitant]
     Active Substance: HYDROCHLOROTHIAZIDE

REACTIONS (3)
  - Rectal haemorrhage [None]
  - Painful defaecation [None]
  - Faeces hard [None]

NARRATIVE: CASE EVENT DATE: 201505
